FAERS Safety Report 4962689-8 (Version None)
Quarter: 2006Q2

REPORT INFORMATION
  Report Type: 
  Country: None (occurrence: None)
  Receive Date: 20060404
  Receipt Date: 20051003
  Transmission Date: 20061013
  Serious: Yes (Death, Hospitalization)
  Sender: FDA-Public Use
  Company Number: US-MERCK-0510USA02597

PATIENT
  Age: 71 Year
  Sex: Female
  Weight: 57 kg

DRUGS (3)
  1. VIOXX [Suspect]
     Indication: ARTHRITIS
     Route: 048
     Dates: start: 20000411, end: 20000925
  2. VIOXX [Suspect]
     Route: 048
     Dates: start: 20000411, end: 20000925
  3. ASPIRIN [Concomitant]
     Route: 065

REACTIONS (5)
  - CHEST PAIN [None]
  - DEATH [None]
  - HIATUS HERNIA [None]
  - ISCHAEMIC STROKE [None]
  - THROMBOSIS [None]
